FAERS Safety Report 18549031 (Version 4)
Quarter: 2021Q2

REPORT INFORMATION
  Report Type: Report from Study
  Country: US (occurrence: US)
  Receive Date: 20201126
  Receipt Date: 20210602
  Transmission Date: 20210717
  Serious: Yes (Hospitalization, Other)
  Sender: FDA-Public Use
  Company Number: NVSC2020US310202

PATIENT
  Age: 62 Year
  Sex: Female

DRUGS (2)
  1. PREDNISONE. [Concomitant]
     Active Substance: PREDNISONE
     Indication: PRODUCT USED FOR UNKNOWN INDICATION
     Dosage: UNK
     Route: 065
  2. COSENTYX [Suspect]
     Active Substance: SECUKINUMAB
     Indication: PSORIATIC ARTHROPATHY
     Dosage: 150 MG, QW (ONCE WEEKLY FOR 5 WEEKS, THEN ONCE EVERY 4 WEEKS)
     Route: 058
     Dates: start: 20201010

REACTIONS (13)
  - COVID-19 [Recovering/Resolving]
  - Eye infection [Unknown]
  - Dysphonia [Unknown]
  - Rhinitis [Unknown]
  - Nail disorder [Unknown]
  - Onychoclasis [Unknown]
  - Cough [Unknown]
  - Fatigue [Unknown]
  - Contusion [Unknown]
  - Psoriatic arthropathy [Unknown]
  - Back pain [Unknown]
  - Malaise [Unknown]
  - Arthropathy [Unknown]

NARRATIVE: CASE EVENT DATE: 20201208
